FAERS Safety Report 5825343-6 (Version None)
Quarter: 2008Q3

REPORT INFORMATION
  Report Type: 
  Country: None (occurrence: None)
  Receive Date: 20080722
  Receipt Date: 20080711
  Transmission Date: 20090109
  Serious: Yes (Hospitalization)
  Sender: FDA-Public Use
  Company Number: 2008AL004112

PATIENT
  Age: 80 Year
  Sex: Male
  Weight: 108.8633 kg

DRUGS (10)
  1. DIGOXIN [Suspect]
     Indication: ATRIAL FIBRILLATION
     Dosage: 0.25MG DAILY PO
     Route: 048
  2. LASIX [Concomitant]
  3. COUMADIN [Concomitant]
  4. LIPITOR [Concomitant]
  5. LANOXIN [Concomitant]
  6. LISINOPRIL [Concomitant]
  7. AMLODIPINE [Concomitant]
  8. NEXIUM [Concomitant]
  9. FLOMAX [Concomitant]
  10. AVODART [Concomitant]

REACTIONS (4)
  - ACCIDENTAL OVERDOSE [None]
  - ASTHENIA [None]
  - DYSPNOEA [None]
  - NONSPECIFIC REACTION [None]
